FAERS Safety Report 14583313 (Version 1)
Quarter: 2018Q1

REPORT INFORMATION
  Report Type: Spontaneous
  Country: US (occurrence: US)
  Receive Date: 20180228
  Receipt Date: 20180228
  Transmission Date: 20180509
  Serious: Yes (Other)
  Sender: FDA-Public Use
  Company Number: US-OTSUKA-DJ20112409

PATIENT

DRUGS (3)
  1. ABILIFY [Suspect]
     Active Substance: ARIPIPRAZOLE
     Indication: BIPOLAR DISORDER
     Route: 065
  2. ABILIFY [Suspect]
     Active Substance: ARIPIPRAZOLE
     Indication: SCHIZOAFFECTIVE DISORDER
  3. ABILIFY [Suspect]
     Active Substance: ARIPIPRAZOLE
     Indication: BIPOLAR DISORDER
     Route: 065
     Dates: start: 201103

REACTIONS (8)
  - Insomnia [Recovering/Resolving]
  - Akathisia [Recovering/Resolving]
  - Speech disorder [Recovering/Resolving]
  - Disturbance in attention [Unknown]
  - Agitation [Unknown]
  - Tremor [Recovering/Resolving]
  - Amnesia [Unknown]
  - Somnolence [Unknown]
